FAERS Safety Report 21009879 (Version 11)
Quarter: 2023Q4

REPORT INFORMATION
  Report Type: Spontaneous
  Country: US (occurrence: US)
  Receive Date: 20220627
  Receipt Date: 20231106
  Transmission Date: 20240109
  Serious: Yes (Other)
  Sender: FDA-Public Use
  Company Number: US-PFIZER INC-PV202200010243

PATIENT
  Age: 69 Year
  Sex: Female
  Weight: 67.13 kg

DRUGS (3)
  1. IBRANCE [Suspect]
     Active Substance: PALBOCICLIB
     Indication: Breast cancer female
     Dosage: 100 MG, CYCLIC OR 21 DAYS, FOLLOWED BY 7 DAYS OFF. REPEAT EVERY 28 DAYS
     Route: 048
     Dates: start: 20221212
  2. IBRANCE [Suspect]
     Active Substance: PALBOCICLIB
     Indication: Breast cancer metastatic
     Dosage: 125 MG, CYCLIC 21 TABLET/TAKE FOR 21 DAYS THEN OFF FOR 7 DAYS
     Route: 048
  3. IBRANCE [Suspect]
     Active Substance: PALBOCICLIB
     Dosage: 75 MG, CYCLIC (3 WEEKS ON, 1 WEEK OFF)
     Route: 048
     Dates: start: 20231017

REACTIONS (4)
  - Cataract [Unknown]
  - White blood cell count decreased [Recovering/Resolving]
  - Full blood count decreased [Unknown]
  - Memory impairment [Unknown]

NARRATIVE: CASE EVENT DATE: 20231001
